FAERS Safety Report 13540670 (Version 1)
Quarter: 2017Q2

REPORT INFORMATION
  Report Type: Spontaneous
  Country: GB (occurrence: GB)
  Receive Date: 20170512
  Receipt Date: 20170512
  Transmission Date: 20170830
  Serious: Yes (Life-Threatening)
  Sender: FDA-Public Use
  Company Number: GB-FRESENIUS KABI-FK201703831

PATIENT
  Age: 77 Year
  Sex: Female
  Weight: 89 kg

DRUGS (1)
  1. ROCURONIUM [Suspect]
     Active Substance: ROCURONIUM BROMIDE
     Indication: ENDOTRACHEAL INTUBATION
     Route: 042
     Dates: start: 20170406, end: 20170406

REACTIONS (4)
  - Acquired dysfibrinogenaemia [Unknown]
  - Cardiac arrest [Recovered/Resolved]
  - Anaphylactic reaction [Recovered/Resolved]
  - Pulseless electrical activity [Recovered/Resolved]

NARRATIVE: CASE EVENT DATE: 20170406
